FAERS Safety Report 14859809 (Version 2)
Quarter: 2018Q2

REPORT INFORMATION
  Report Type: Spontaneous
  Country: US (occurrence: US)
  Receive Date: 20180508
  Receipt Date: 20180513
  Transmission Date: 20180711
  Serious: No
  Sender: FDA-Public Use
  Company Number: US-ROCHE-2118687

PATIENT
  Age: 68 Year
  Sex: Male
  Weight: 95 kg

DRUGS (5)
  1. AVASTIN [Suspect]
     Active Substance: BEVACIZUMAB
     Indication: RENAL CELL CARCINOMA
     Route: 042
     Dates: start: 20180314
  2. PROCARDIA (UNITED STATES) [Concomitant]
     Indication: HYPERTENSION
     Route: 048
     Dates: start: 2016
  3. MAG OXIDE [Concomitant]
     Active Substance: MAGNESIUM OXIDE
     Route: 048
     Dates: start: 20180303
  4. TECENTRIQ [Suspect]
     Active Substance: ATEZOLIZUMAB
     Indication: RENAL CELL CARCINOMA
     Route: 042
     Dates: start: 20180314
  5. ZOFRAN [Concomitant]
     Active Substance: ONDANSETRON HYDROCHLORIDE
     Indication: VOMITING
     Route: 048

REACTIONS (1)
  - Proteinuria [Recovering/Resolving]

NARRATIVE: CASE EVENT DATE: 20180425
